FAERS Safety Report 8997700 (Version 1)
Quarter: 2013Q1

REPORT INFORMATION
  Report Type: Spontaneous
  Country: IT (occurrence: IT)
  Receive Date: 20130104
  Receipt Date: 20130104
  Transmission Date: 20140127
  Serious: Yes (Life-Threatening, Hospitalization)
  Sender: FDA-Public Use
  Company Number: IT-ASTRAZENECA-2012SE80890

PATIENT
  Age: 18323 Day
  Sex: Female

DRUGS (5)
  1. MEPRAL [Suspect]
     Indication: HELICOBACTER GASTRITIS
     Route: 048
     Dates: start: 20120911, end: 20120911
  2. VELAMOX [Suspect]
     Indication: HELICOBACTER GASTRITIS
     Dosage: TOTAL DAILY DOSE 2 GRAMS
     Route: 048
     Dates: start: 20120911, end: 20120911
  3. KLACID [Suspect]
     Indication: HELICOBACTER GASTRITIS
     Route: 048
     Dates: start: 20120911, end: 20120911
  4. METFORMIN [Concomitant]
     Indication: DIABETES MELLITUS
  5. SIVASTIN [Concomitant]
     Indication: DYSLIPIDAEMIA

REACTIONS (3)
  - Anaphylactic shock [Recovered/Resolved]
  - Dyspnoea [Unknown]
  - Asthma [Unknown]
